APPROVED DRUG PRODUCT: SUCCINYLCHOLINE CHLORIDE
Active Ingredient: SUCCINYLCHOLINE CHLORIDE
Strength: 100MG/5ML (20MG/ML)
Dosage Form/Route: SOLUTION;INTRAMUSCULAR, INTRAVENOUS
Application: N215143 | Product #001 | TE Code: AP
Applicant: HIKMA PHARMACEUTICALS USA INC
Approved: Aug 20, 2021 | RLD: Yes | RS: Yes | Type: RX

PATENTS:
Patent 12295932 | Expires: Nov 2, 2041